FAERS Safety Report 17891564 (Version 1)
Quarter: 2020Q2

REPORT INFORMATION
  Report Type: Report from Study
  Country: US (occurrence: US)
  Receive Date: 20200612
  Receipt Date: 20200612
  Transmission Date: 20200714
  Serious: Yes (Life-Threatening, Hospitalization, Other)
  Sender: FDA-Public Use
  Company Number: US-BIOGEN-2020BI00880930

PATIENT
  Sex: Female

DRUGS (1)
  1. SPINRAZA [Suspect]
     Active Substance: NUSINERSEN
     Indication: SPINAL MUSCULAR ATROPHY
     Route: 065

REACTIONS (7)
  - Tracheostomy malfunction [Unknown]
  - Asthenia [Unknown]
  - Seizure [Unknown]
  - Deafness transitory [Unknown]
  - Blindness transient [Unknown]
  - Oxygen saturation decreased [Unknown]
  - Bone density abnormal [Unknown]
